FAERS Safety Report 9113774 (Version 1)
Quarter: 2013Q1

REPORT INFORMATION
  Report Type: Report from Study
  Country: US (occurrence: US)
  Receive Date: 20130129
  Receipt Date: 20130129
  Transmission Date: 20140127
  Serious: No
  Sender: FDA-Public Use
  Company Number: US-ABBOTT-12P-163-0941974-00

PATIENT
  Age: 48 Year
  Sex: Female

DRUGS (5)
  1. HUMIRA 40 MG/0.8 ML PEN [Suspect]
     Indication: RHEUMATOID ARTHRITIS
     Dates: start: 20120419
  2. METHOTREXATE [Concomitant]
     Indication: RHEUMATOID ARTHRITIS
     Dosage: 8 TABS A WEEK
  3. FOLIC ACID [Concomitant]
     Indication: PRODUCT USED FOR UNKNOWN INDICATION
     Dosage: DAILY - EXECPT ON DAY OF METHOTREXATE DOSE
  4. VITAMIN D [Concomitant]
     Indication: SUPPLEMENTATION THERAPY
  5. VITAMIN C [Concomitant]
     Indication: SUPPLEMENTATION THERAPY

REACTIONS (5)
  - Device malfunction [Recovered/Resolved]
  - Injection site pain [Recovered/Resolved]
  - Injection site bruising [Recovered/Resolved]
  - Injection site pain [Recovered/Resolved]
  - Incorrect dose administered [Recovered/Resolved]
